FAERS Safety Report 9031978 (Version 1)
Quarter: 2013Q1

REPORT INFORMATION
  Report Type: Report from Study
  Country: US (occurrence: US)
  Receive Date: 20130125
  Receipt Date: 20130125
  Transmission Date: 20140127
  Serious: Yes (Hospitalization)
  Sender: FDA-Public Use
  Company Number: US-ASTELLAS-2013US000907

PATIENT
  Age: 78 Year
  Sex: Female
  Weight: 70 kg

DRUGS (2)
  1. ERLOTINIB TABLET [Suspect]
     Indication: NON-SMALL CELL LUNG CANCER
     Dosage: 150 MG, UID/QD
     Route: 048
     Dates: start: 20121201, end: 20121206
  2. ERLOTINIB TABLET [Suspect]
     Dosage: QOD
     Route: 048
     Dates: start: 20130109

REACTIONS (4)
  - Overdose [Unknown]
  - Wrong technique in drug usage process [Unknown]
  - Pneumonia [Recovered/Resolved]
  - Urine odour abnormal [Not Recovered/Not Resolved]
